FAERS Safety Report 6497179-7 (Version None)
Quarter: 2009Q4

REPORT INFORMATION
  Report Type: 
  Country: None (occurrence: None)
  Receive Date: 20091215
  Receipt Date: 20090513
  Transmission Date: 20100525
  Serious: No
  Sender: FDA-Public Use
  Company Number: A0785208A

PATIENT
  Age: 54 Year
  Sex: Male

DRUGS (1)
  1. AVODART [Suspect]
     Indication: DRUG USE FOR UNKNOWN INDICATION
     Dates: start: 20090401

REACTIONS (4)
  - DIZZINESS [None]
  - MALAISE [None]
  - NAUSEA [None]
  - SLUGGISHNESS [None]
